FAERS Safety Report 7397364-6 (Version None)
Quarter: 2011Q2

REPORT INFORMATION
  Report Type: 
  Country: None (occurrence: None)
  Receive Date: 20110406
  Receipt Date: 20110330
  Transmission Date: 20111010
  Serious: No
  Sender: FDA-Public Use
  Company Number: US-PFIZER INC-US-WYE-H14931510

PATIENT
  Sex: Male
  Weight: 105.2 kg

DRUGS (10)
  1. HYZAAR [Concomitant]
     Dosage: UNK
  2. SIMVASTATIN [Concomitant]
     Dosage: UNK
  3. EFFEXOR XR [Suspect]
     Indication: DEPRESSION
     Dosage: 225 MG, 1X/DAY
     Route: 065
     Dates: end: 20100401
  4. ZOLOFT [Suspect]
     Indication: DEPRESSION
     Dosage: UNK
  5. SPIRIVA [Concomitant]
     Dosage: UNK
  6. EFFEXOR XR [Suspect]
     Dosage: 75 MG, 3X/DAY
     Dates: end: 20100401
  7. EFFEXOR XR [Suspect]
     Dosage: 150 MG, 1X/DAY
     Route: 065
     Dates: start: 20100401
  8. WELLBUTRIN [Concomitant]
     Dosage: UNK
  9. PLAVIX [Concomitant]
     Dosage: UNK
  10. FLONASE [Concomitant]
     Dosage: UNK

REACTIONS (14)
  - ARTHRALGIA [None]
  - WEIGHT DECREASED [None]
  - FEELING ABNORMAL [None]
  - PAIN IN JAW [None]
  - FATIGUE [None]
  - NASAL CONGESTION [None]
  - DRUG WITHDRAWAL SYNDROME [None]
  - DRUG INEFFECTIVE [None]
  - PAIN IN EXTREMITY [None]
  - DRUG HYPERSENSITIVITY [None]
  - HEADACHE [None]
  - DECREASED APPETITE [None]
  - URTICARIA [None]
  - ANXIETY [None]
